FAERS Safety Report 21946849 (Version 1)
Quarter: 2023Q1

REPORT INFORMATION
  Report Type: Spontaneous
  Country: US (occurrence: US)
  Receive Date: 20230202
  Receipt Date: 20230202
  Transmission Date: 20230417
  Serious: Yes (Death, Other)
  Sender: FDA-Public Use
  Company Number: US-PFIZER INC-202101704618

PATIENT
  Age: 73 Year
  Sex: Female

DRUGS (1)
  1. PREMPRO [Suspect]
     Active Substance: ESTROGENS, CONJUGATED\MEDROXYPROGESTERONE ACETATE
     Indication: Hormone replacement therapy
     Dosage: TAKE 1 TABLET BY MOUTH (TAKES ON MON,WED, FRI)
     Route: 048
     Dates: start: 20211213

REACTIONS (2)
  - Death [Fatal]
  - Off label use [Unknown]
